FAERS Safety Report 13333799 (Version 2)
Quarter: 2017Q2

REPORT INFORMATION
  Report Type: Spontaneous
  Country: US (occurrence: US)
  Receive Date: 20170314
  Receipt Date: 20170606
  Transmission Date: 20170830
  Serious: No
  Sender: FDA-Public Use
  Company Number: US-ELI_LILLY_AND_COMPANY-US201702010715

PATIENT
  Age: 64 Year
  Sex: Female

DRUGS (10)
  1. FLOVENT [Concomitant]
     Active Substance: FLUTICASONE PROPIONATE
  2. ESTROPIPATE. [Concomitant]
     Active Substance: ESTROPIPATE
  3. HYDROCHLOROTHIAZIDE. [Concomitant]
     Active Substance: HYDROCHLOROTHIAZIDE
  4. ADCIRCA [Suspect]
     Active Substance: TADALAFIL
     Dosage: 10 MG, QD
     Route: 065
     Dates: start: 20161119, end: 201612
  5. SEREVENT DISKUS [Concomitant]
     Active Substance: SALMETEROL XINAFOATE
  6. SYNTHROID [Concomitant]
     Active Substance: LEVOTHYROXINE SODIUM
  7. ADCIRCA [Suspect]
     Active Substance: TADALAFIL
     Indication: PULMONARY HYPERTENSION
     Dosage: 20 MG, QD
     Route: 065
     Dates: start: 20160824, end: 20161003
  8. ADCIRCA [Suspect]
     Active Substance: TADALAFIL
     Dosage: 5 MG, QD
     Route: 065
     Dates: start: 201612
  9. FUROSEMIDE. [Concomitant]
     Active Substance: FUROSEMIDE
  10. LETAIRIS [Suspect]
     Active Substance: AMBRISENTAN
     Indication: PULMONARY HYPERTENSION
     Dosage: UNK
     Route: 065
     Dates: end: 20161005

REACTIONS (13)
  - Feeling abnormal [Not Recovered/Not Resolved]
  - Pain [Not Recovered/Not Resolved]
  - Urticaria [Not Recovered/Not Resolved]
  - Pain in extremity [Recovered/Resolved]
  - Drug intolerance [Recovering/Resolving]
  - Influenza [Not Recovered/Not Resolved]
  - Incorrect dose administered [Recovered/Resolved]
  - Muscle swelling [Recovered/Resolved]
  - Muscle strain [Not Recovered/Not Resolved]
  - Hypokinesia [Not Recovered/Not Resolved]
  - Somnolence [Unknown]
  - Influenza like illness [Recovered/Resolved]
  - Dermatitis [Recovering/Resolving]

NARRATIVE: CASE EVENT DATE: 201608
